FAERS Safety Report 21531353 (Version 1)
Quarter: 2022Q4

REPORT INFORMATION
  Report Type: Spontaneous
  Country: US (occurrence: None)
  Receive Date: 20221028
  Receipt Date: 20221028
  Transmission Date: 20230113
  Serious: No
  Sender: FDA-Public Use
  Company Number: None

PATIENT
  Age: 83 Year
  Sex: Male

DRUGS (2)
  1. CIPROFLOXACIN HYDROCHLORIDE [Suspect]
     Active Substance: CIPROFLOXACIN HYDROCHLORIDE
     Dates: start: 20220205, end: 20220208
  2. FLAGYL [Suspect]
     Active Substance: METRONIDAZOLE\METRONIDAZOLE HYDROCHLORIDE

REACTIONS (1)
  - Stevens-Johnson syndrome [None]

NARRATIVE: CASE EVENT DATE: 20220213
